FAERS Safety Report 18570261 (Version 2)
Quarter: 2020Q4

REPORT INFORMATION
  Report Type: Spontaneous
  Country: JP (occurrence: JP)
  Receive Date: 20201202
  Receipt Date: 20201213
  Transmission Date: 20210114
  Serious: Yes (Other)
  Sender: FDA-Public Use
  Company Number: JP-SUN PHARMACEUTICAL INDUSTRIES LTD-2020RR-268868

PATIENT
  Age: 6 Year
  Sex: Female

DRUGS (15)
  1. ALEVIATIN [Suspect]
     Active Substance: PHENYTOIN SODIUM
     Indication: EPILEPSY
     Dosage: UNK
     Route: 065
  2. MIDAZOLAM. [Suspect]
     Active Substance: MIDAZOLAM
     Indication: EPILEPSY
     Dosage: UNK
     Route: 065
  3. VIMPAT [Suspect]
     Active Substance: LACOSAMIDE
     Indication: EPILEPSY
     Dosage: 8 MILLIGRAM/KILOGRAM, DAILY
     Route: 065
  4. TIZANIDINE. [Suspect]
     Active Substance: TIZANIDINE
     Indication: PAROXYSMAL SYMPATHETIC HYPERACTIVITY
     Dosage: UNK
     Route: 065
  5. GABAPEN [Suspect]
     Active Substance: GABAPENTIN
     Dosage: INCREASED TO 40 MILLIGRAM/KILOGRAM, DAILY
     Route: 065
  6. GABAPEN [Suspect]
     Active Substance: GABAPENTIN
     Dosage: DOSE DECREASED
     Route: 065
  7. THIOPENTAL [Suspect]
     Active Substance: THIOPENTAL
     Indication: EPILEPSY
     Dosage: UNK
     Route: 042
  8. DEPAKENE [Suspect]
     Active Substance: VALPROIC ACID
     Dosage: DOSE INCREASED
     Route: 065
  9. LAMICTAL [Suspect]
     Active Substance: LAMOTRIGINE
     Indication: EPILEPSY
     Dosage: 3.6 MILLIGRAM/KILOGRAM, DAILY
     Route: 065
  10. PHENOBAL [Suspect]
     Active Substance: PHENOBARBITAL
     Indication: EPILEPSY
     Dosage: UNK
     Route: 065
  11. RIVOTRIL [Suspect]
     Active Substance: CLONAZEPAM
     Indication: EPILEPSY
     Dosage: 0.1 MILLIGRAM/KILOGRAM, DAILY
     Route: 065
  12. POTASSIUM BROMIDE [Suspect]
     Active Substance: POTASSIUM BROMIDE
     Indication: EPILEPSY
     Dosage: 35 MILLIGRAM/KILOGRAM, DAILY
     Route: 065
  13. DEPAKENE [Suspect]
     Active Substance: VALPROIC ACID
     Indication: PRODUCT USED FOR UNKNOWN INDICATION
     Dosage: 1 MILLIMOLE PER KILOGRAM, DAILY
     Route: 065
  14. PERAMPANEL [Suspect]
     Active Substance: PERAMPANEL
     Indication: EPILEPSY
     Dosage: 0.15 MILLIGRAM/KILOGRAM, DAILY
     Route: 065
  15. GABAPEN [Suspect]
     Active Substance: GABAPENTIN
     Indication: PAROXYSMAL SYMPATHETIC HYPERACTIVITY
     Dosage: UNK
     Route: 065

REACTIONS (4)
  - Drug ineffective [Unknown]
  - Therapy partial responder [Unknown]
  - Therapeutic product effect decreased [Unknown]
  - Hyperammonaemia [Recovered/Resolved]
